FAERS Safety Report 6196825-5 (Version None)
Quarter: 2009Q2

REPORT INFORMATION
  Report Type: 
  Country: None (occurrence: None)
  Receive Date: 20090520
  Receipt Date: 20090511
  Transmission Date: 20091009
  Serious: Yes (Hospitalization)
  Sender: FDA-Public Use
  Company Number: ES-WATSON-2009-03360

PATIENT
  Age: 72 Year
  Sex: Male

DRUGS (5)
  1. CLARITHROMYCIN [Suspect]
     Indication: RESPIRATORY TRACT INFECTION
     Dosage: UNK
     Dates: start: 20070101
  2. IBUPROFEN TABLETS [Suspect]
     Indication: PYREXIA
     Dosage: UNK
     Dates: start: 20070101
  3. ACETAMINOPHEN [Suspect]
     Indication: PYREXIA
     Dosage: UNK
     Dates: start: 20070101
  4. AMOXICILLIN [Suspect]
     Indication: RESPIRATORY TRACT INFECTION
     Dosage: UNK
     Dates: start: 20070101
  5. IMATINIB MESYLATE [Suspect]
     Indication: CHRONIC MYELOID LEUKAEMIA
     Dosage: UNK

REACTIONS (1)
  - APLASTIC ANAEMIA [None]
